FAERS Safety Report 10170988 (Version 1)
Quarter: 2014Q2

REPORT INFORMATION
  Report Type: Spontaneous
  Country: MX (occurrence: MX)
  Receive Date: 20140514
  Receipt Date: 20140514
  Transmission Date: 20141212
  Serious: No
  Sender: FDA-Public Use
  Company Number: MX-ELI_LILLY_AND_COMPANY-MX201405002942

PATIENT
  Age: 46 Year
  Sex: Male

DRUGS (2)
  1. CIALIS [Suspect]
     Indication: PRODUCT USED FOR UNKNOWN INDICATION
     Dosage: 1 DF, QD
     Route: 048
     Dates: start: 201402
  2. BEZAFIBRATE [Concomitant]

REACTIONS (1)
  - Vision blurred [Recovered/Resolved]
